FAERS Safety Report 5175042-1 (Version None)
Quarter: 2006Q4

REPORT INFORMATION
  Report Type: 
  Country: None (occurrence: None)
  Receive Date: 20061206
  Receipt Date: 20061113
  Transmission Date: 20070319
  Serious: Yes (Life-Threatening, Hospitalization, Other)
  Sender: FDA-Public Use
  Company Number: 2006SP004220

PATIENT
  Age: 63 Year
  Sex: Female

DRUGS (8)
  1. TEMODAL [Suspect]
     Indication: MALIGNANT GLIOMA
     Dosage: 75 MG M2
     Dates: start: 20060516, end: 20060703
  2. TEMODAL [Suspect]
     Indication: MALIGNANT GLIOMA
     Dosage: 75 MG M2
     Dates: start: 20060731, end: 20060901
  3. TRITICUM (CON.) [Concomitant]
  4. RISIDON (CON.) [Concomitant]
  5. DEPAKINE (CON.) [Concomitant]
  6. RADIOTHERAPY (CON.) [Concomitant]
  7. OMEPRAZOL (CON.) [Concomitant]
  8. DEXAMETHASONE (CON.) [Concomitant]

REACTIONS (13)
  - ALANINE AMINOTRANSFERASE INCREASED [None]
  - BILIRUBIN CONJUGATED INCREASED [None]
  - BLOOD ALKALINE PHOSPHATASE INCREASED [None]
  - BLOOD CREATININE DECREASED [None]
  - BLOOD CULTURE POSITIVE [None]
  - BLOOD DISORDER [None]
  - BLOOD GLUCOSE INCREASED [None]
  - BLOOD POTASSIUM DECREASED [None]
  - BLOOD UREA DECREASED [None]
  - GAMMA-GLUTAMYLTRANSFERASE INCREASED [None]
  - HYPOCALCAEMIA [None]
  - PANCYTOPENIA [None]
  - PSEUDOMONAS INFECTION [None]
